FAERS Safety Report 11789073 (Version 2)
Quarter: 2015Q4

REPORT INFORMATION
  Report Type: Spontaneous
  Country: ES (occurrence: ES)
  Receive Date: 20151201
  Receipt Date: 20151218
  Transmission Date: 20160305
  Serious: Yes (Other)
  Sender: FDA-Public Use
  Company Number: ES-AMGEN-ESPSP2015111510

PATIENT
  Age: 65 Year
  Sex: Female

DRUGS (2)
  1. PROLIA [Suspect]
     Active Substance: DENOSUMAB
     Indication: PRODUCT USED FOR UNKNOWN INDICATION
     Dosage: UNK
     Route: 065
     Dates: start: 201504
  2. SINGULAIR [Concomitant]
     Active Substance: MONTELUKAST SODIUM
     Indication: ASTHMA

REACTIONS (7)
  - Pyrexia [Recovered/Resolved]
  - Acute sinusitis [Recovered/Resolved]
  - Tooth extraction [Unknown]
  - Urinary tract infection [Unknown]
  - Oral pain [Recovered/Resolved]
  - Nephrolithiasis [Unknown]
  - Cold sweat [Recovering/Resolving]

NARRATIVE: CASE EVENT DATE: 2015
